FAERS Safety Report 9643957 (Version 1)
Quarter: 2013Q4

REPORT INFORMATION
  Report Type: Spontaneous
  Country: GB (occurrence: GB)
  Receive Date: 20131024
  Receipt Date: 20131024
  Transmission Date: 20140711
  Serious: Yes (Hospitalization, Other)
  Sender: FDA-Public Use
  Company Number: GB-GILEAD-2013-0085681

PATIENT
  Age: 39 Year
  Sex: Female
  Weight: 75 kg

DRUGS (5)
  1. EVIPLERA [Suspect]
     Indication: HIV ANTIBODY POSITIVE
     Route: 048
     Dates: start: 20130903, end: 20130930
  2. DARUNAVIR [Concomitant]
     Indication: HIV INFECTION
     Dosage: 800 MG, QD
  3. RITONAVIR [Concomitant]
     Indication: HIV INFECTION
     Dosage: 100 MG, QD
  4. KIVEXA [Concomitant]
     Indication: HIV INFECTION
     Dosage: 1 DF, QD
  5. ACICLOVIR [Concomitant]
     Indication: HERPES VIRUS INFECTION
     Dosage: 200 MG, UNK

REACTIONS (8)
  - Oedema [Recovering/Resolving]
  - Hypotension [Unknown]
  - Syncope [Unknown]
  - Localised oedema [Not Recovered/Not Resolved]
  - Face oedema [Not Recovered/Not Resolved]
  - Oedema peripheral [Recovering/Resolving]
  - Pruritus [Not Recovered/Not Resolved]
  - Rash papular [Recovering/Resolving]
